FAERS Safety Report 19753901 (Version 1)
Quarter: 2021Q3

REPORT INFORMATION
  Report Type: Spontaneous
  Country: US (occurrence: US)
  Receive Date: 20210827
  Receipt Date: 20210827
  Transmission Date: 20211014
  Serious: No
  Sender: FDA-Public Use
  Company Number: US-SA-2021SA279247

PATIENT
  Age: 71 Year
  Sex: Female

DRUGS (1)
  1. LANTUS SOLOSTAR [Suspect]
     Active Substance: INSULIN GLARGINE
     Indication: DIABETES MELLITUS
     Dosage: 11 UNITS AM, 7 UNITS PM, 2 TIMES DAILY DRUG TREATMENT DURATION: UNKNOWN
     Route: 065

REACTIONS (3)
  - Product storage error [Unknown]
  - Product use complaint [Unknown]
  - Inappropriate schedule of product administration [Unknown]
